FAERS Safety Report 15892778 (Version 1)
Quarter: 2019Q1

REPORT INFORMATION
  Report Type: Report from Study
  Country: US (occurrence: US)
  Receive Date: 20190130
  Receipt Date: 20190130
  Transmission Date: 20190417
  Serious: No
  Sender: FDA-Public Use
  Company Number: US-EXELIXIS-CABO-18016000

PATIENT
  Sex: Female

DRUGS (19)
  1. FLUTICASONE PROPIONATE. [Concomitant]
     Active Substance: FLUTICASONE PROPIONATE
  2. CABOMETYX [Suspect]
     Active Substance: CABOZANTINIB S-MALATE
     Dosage: 60 MG, QD
     Route: 048
     Dates: start: 2018
  3. TURMERIC [Concomitant]
     Active Substance: HERBALS\TURMERIC
  4. ONDANSETRON [Concomitant]
     Active Substance: ONDANSETRON
  5. METOPROLOL SUCCINATE. [Concomitant]
     Active Substance: METOPROLOL SUCCINATE
  6. CETRIZINE [Concomitant]
     Active Substance: CETIRIZINE HYDROCHLORIDE
  7. VITAMIN B12 [Concomitant]
     Active Substance: CYANOCOBALAMIN
  8. LISINOPRIL. [Concomitant]
     Active Substance: LISINOPRIL
  9. PROTONIX [Concomitant]
     Active Substance: PANTOPRAZOLE SODIUM
  10. VITAMIN C [Concomitant]
     Active Substance: ASCORBIC ACID
  11. CABOMETYX [Suspect]
     Active Substance: CABOZANTINIB S-MALATE
     Indication: RENAL CANCER
     Dosage: 60 MG, QD
     Route: 048
     Dates: start: 20180824, end: 2018
  12. ATORVASTATIN CALCIUM. [Concomitant]
     Active Substance: ATORVASTATIN CALCIUM
     Dosage: UNK
  13. VITAMIN D3 [Concomitant]
     Active Substance: CHOLECALCIFEROL
  14. SUCRALFATE. [Concomitant]
     Active Substance: SUCRALFATE
  15. ASPIRIN. [Concomitant]
     Active Substance: ASPIRIN
  16. LIPITOR [Concomitant]
     Active Substance: ATORVASTATIN CALCIUM
  17. TOVIAZ [Concomitant]
     Active Substance: FESOTERODINE FUMARATE
  18. ALBUTEROL. [Concomitant]
     Active Substance: ALBUTEROL
  19. MULTIVITAMIN WITH FLUORIDE NOS [Concomitant]
     Active Substance: SODIUM FLUORIDE\VITAMINS

REACTIONS (8)
  - Dry skin [Unknown]
  - Nausea [Recovering/Resolving]
  - Arthralgia [Unknown]
  - Eye pruritus [Unknown]
  - Blood potassium decreased [Unknown]
  - Abdominal discomfort [Unknown]
  - Palmar erythema [Unknown]
  - Diarrhoea [Unknown]

NARRATIVE: CASE EVENT DATE: 2018
